FAERS Safety Report 8090465-9 (Version None)
Quarter: 2012Q1

REPORT INFORMATION
  Report Type: 
  Country: None (occurrence: None)
  Receive Date: 20120129
  Receipt Date: 20120123
  Transmission Date: 20120608
  Serious: Yes (Other)
  Sender: FDA-Public Use
  Company Number: US-AMGEN-USASP2012004584

PATIENT
  Age: 67 Year
  Sex: Female

DRUGS (3)
  1. PROLIA [Suspect]
     Indication: OSTEOPOROSIS POSTMENOPAUSAL
     Dates: start: 20110601
  2. VITAMIN D [Concomitant]
  3. CALCIUM [Concomitant]

REACTIONS (16)
  - ABDOMINAL DISTENSION [None]
  - SCIATICA [None]
  - INSOMNIA [None]
  - DYSURIA [None]
  - MOBILITY DECREASED [None]
  - MUSCLE SPASMS [None]
  - ABDOMINAL PAIN UPPER [None]
  - DRUG ERUPTION [None]
  - HAIR GROWTH ABNORMAL [None]
  - BACK PAIN [None]
  - RASH PRURITIC [None]
  - BLOOD CHOLESTEROL INCREASED [None]
  - ALOPECIA [None]
  - PAIN [None]
  - FEELING ABNORMAL [None]
  - CRYING [None]
